FAERS Safety Report 24386900 (Version 1)
Quarter: 2024Q4

REPORT INFORMATION
  Report Type: Spontaneous
  Country: AT (occurrence: AT)
  Receive Date: 20241002
  Receipt Date: 20241002
  Transmission Date: 20250114
  Serious: Yes (Other)
  Sender: CELLTRION
  Company Number: None

PATIENT

DRUGS (1)
  1. INFLIXIMAB [Suspect]
     Active Substance: INFLIXIMAB
     Indication: Product used for unknown indication
     Dosage: 140 ML, 1 TOTAL
     Route: 042
     Dates: start: 20230525, end: 20230525

REACTIONS (4)
  - Application site necrosis [Unknown]
  - Administration site extravasation [Unknown]
  - Application site swelling [Unknown]
  - Application site pain [Unknown]

NARRATIVE: CASE EVENT DATE: 20230525
